APPROVED DRUG PRODUCT: IBUPROHM COLD AND SINUS
Active Ingredient: IBUPROFEN; PSEUDOEPHEDRINE HYDROCHLORIDE
Strength: 200MG;30MG
Dosage Form/Route: TABLET;ORAL
Application: A074567 | Product #001
Applicant: OHM LABORATORIES INC
Approved: Apr 17, 2001 | RLD: No | RS: No | Type: OTC